FAERS Safety Report 6115262-2 (Version None)
Quarter: 2009Q1

REPORT INFORMATION
  Report Type: 
  Country: None (occurrence: None)
  Receive Date: 20090313
  Receipt Date: 20090304
  Transmission Date: 20090719
  Serious: Yes (Life-Threatening, Hospitalization)
  Sender: FDA-Public Use
  Company Number: JP-MERCK-0903USA01218

PATIENT
  Age: 50 Year
  Sex: Male

DRUGS (1)
  1. HYZAAR [Suspect]
     Indication: HYPERTENSION
     Route: 048
     Dates: start: 20081021

REACTIONS (1)
  - CEREBELLAR INFARCTION [None]
